FAERS Safety Report 13626510 (Version 1)
Quarter: 2017Q2

REPORT INFORMATION
  Report Type: Spontaneous
  Country: US (occurrence: US)
  Receive Date: 20170531
  Receipt Date: 20170531
  Transmission Date: 20170830
  Serious: Yes (Other)
  Sender: FDA-Public Use
  Company Number: US-ASTELLAS-1400672

PATIENT
  Age: 67 Year
  Sex: Female

DRUGS (8)
  1. VITAMIN B12 [Concomitant]
     Active Substance: CYANOCOBALAMIN
     Route: 065
  2. ASPIR 81 [Concomitant]
     Route: 065
  3. CIPRODEX (UNITED STATES) [Concomitant]
     Dosage: 0.3-0.1%
     Route: 065
  4. KLOR-CON [Concomitant]
     Active Substance: POTASSIUM CHLORIDE
  5. CORTISONE [Concomitant]
     Active Substance: CORTISONE\HYDROCORTISONE
  6. LOPERAMIDE [Concomitant]
     Active Substance: LOPERAMIDE
     Route: 065
  7. PROCARDIA (UNITED STATES) [Concomitant]
     Route: 065
  8. TARCEVA [Suspect]
     Active Substance: ERLOTINIB HYDROCHLORIDE
     Indication: LUNG NEOPLASM MALIGNANT
     Dosage: THERAPY START DATE 05/SEP/2013
     Route: 048
     Dates: end: 20141104

REACTIONS (4)
  - Disease progression [Not Recovered/Not Resolved]
  - Diarrhoea [Not Recovered/Not Resolved]
  - Neoplasm progression [Not Recovered/Not Resolved]
  - Rash [Not Recovered/Not Resolved]

NARRATIVE: CASE EVENT DATE: 201309
